FAERS Safety Report 21732805 (Version 1)
Quarter: 2022Q4

REPORT INFORMATION
  Report Type: Spontaneous
  Country: FR (occurrence: FR)
  Receive Date: 20221215
  Receipt Date: 20221215
  Transmission Date: 20230113
  Serious: Yes (Death, Other)
  Sender: FDA-Public Use
  Company Number: None

PATIENT
  Age: 56 Year
  Sex: Male
  Weight: 69 kg

DRUGS (8)
  1. PANTOPRAZOLE [Suspect]
     Active Substance: PANTOPRAZOLE
     Indication: Prophylaxis against gastrointestinal ulcer
     Dosage: 20MG AT BEDTIME
     Route: 048
  2. AMISULPRIDE [Suspect]
     Active Substance: AMISULPRIDE
     Indication: Schizophrenia
     Dosage: 50 MG IN THE MORNING AND 100 MG IN THE EVENING
     Route: 048
  3. DOMPERIDONE [Suspect]
     Active Substance: DOMPERIDONE
     Indication: Prophylaxis of nausea and vomiting
     Dosage: 10 MG IN THE MORNING
     Route: 048
  4. GAVISCON [Suspect]
     Active Substance: ALUMINUM HYDROXIDE\MAGNESIUM CARBONATE
     Indication: Gastrooesophageal reflux prophylaxis
     Dosage: 1 MORNING, NOON AND EVENING
     Route: 048
  5. LOXAPINE SUCCINATE [Suspect]
     Active Substance: LOXAPINE SUCCINATE
     Indication: Schizophrenia
     Dosage: 1 IN THE MORNING, 2 IN THE EVENING AND 1 AT BEDTIME
     Route: 048
  6. PALIPERIDONE PALMITATE [Suspect]
     Active Substance: PALIPERIDONE PALMITATE
     Indication: Schizophrenia
     Dosage: 150 MG IN THE MORNING EVERY 28 DAYS
     Route: 030
  7. PHLOROGLUCINOL\1,3,5-TRIMETHOXYBENZENE [Suspect]
     Active Substance: PHLOROGLUCINOL\1,3,5-TRIMETHOXYBENZENE
     Indication: Abdominal pain
     Dosage: 1 TABLET X 3 PER DAY IF NEEDED
     Route: 048
  8. TRIHEXYPHENIDYL HYDROCHLORIDE [Suspect]
     Active Substance: TRIHEXYPHENIDYL HYDROCHLORIDE
     Dosage: 1 IN THE MORNING
     Route: 048

REACTIONS (1)
  - Choking [Fatal]

NARRATIVE: CASE EVENT DATE: 20220919
